FAERS Safety Report 10024398 (Version 1)
Quarter: 2014Q1

REPORT INFORMATION
  Report Type: Spontaneous
  Country: US (occurrence: US)
  Receive Date: 20140320
  Receipt Date: 20140320
  Transmission Date: 20141002
  Serious: Yes (Other)
  Sender: FDA-Public Use
  Company Number: US-ENDO PHARMACEUTICALS INC.-OPCR20140031

PATIENT
  Sex: Female

DRUGS (1)
  1. OPANA ER 40MG [Suspect]
     Indication: PAIN
     Route: 048
     Dates: start: 2013, end: 2014

REACTIONS (3)
  - Respiratory depression [Unknown]
  - Somnolence [Unknown]
  - Drug ineffective [Recovered/Resolved]
